FAERS Safety Report 8027701-0 (Version None)
Quarter: 2012Q1

REPORT INFORMATION
  Report Type: 
  Country: None (occurrence: None)
  Receive Date: 20120104
  Receipt Date: 20111220
  Transmission Date: 20120608
  Serious: Yes (Hospitalization, Other)
  Sender: FDA-Public Use
  Company Number: VAL_00670_2011

PATIENT
  Age: 47 Year
  Sex: Male

DRUGS (4)
  1. CARBAMAZEPINE [Suspect]
     Indication: NEURALGIA
     Dosage: (400 MG)
  2. ACENOCOUMAROL [Concomitant]
  3. FLUINDIONE (FLUINDIONE) [Suspect]
     Indication: ANTICOAGULANT THERAPY
     Dosage: (20 MG) ; (50 MG)
  4. ENOXAPARIN [Concomitant]

REACTIONS (2)
  - INTERNATIONAL NORMALISED RATIO DECREASED [None]
  - DRUG INTERACTION [None]
